FAERS Safety Report 14258688 (Version 2)
Quarter: 2018Q1

REPORT INFORMATION
  Report Type: Spontaneous
  Country: US (occurrence: US)
  Receive Date: 20171207
  Receipt Date: 20180130
  Transmission Date: 20180508
  Serious: No
  Sender: FDA-Public Use
  Company Number: PHEH2017US039216

PATIENT
  Sex: Female

DRUGS (2)
  1. TAFINLAR [Suspect]
     Active Substance: DABRAFENIB MESYLATE
     Indication: THYROID CANCER
     Dosage: 2 DF, BID
     Route: 048
     Dates: start: 20171102
  2. TAFINLAR [Suspect]
     Active Substance: DABRAFENIB MESYLATE
     Dosage: 150 MG, Q12H
     Route: 048
     Dates: start: 20171103

REACTIONS (6)
  - Rash [Unknown]
  - Pain [Unknown]
  - Skin papilloma [Unknown]
  - Melanocytic naevus [Unknown]
  - Arthralgia [Unknown]
  - Bone pain [Unknown]
